FAERS Safety Report 11009135 (Version 1)
Quarter: 2015Q2

REPORT INFORMATION
  Report Type: Report from Study
  Country: DE (occurrence: None)
  Receive Date: 20150408
  Receipt Date: 20150408
  Transmission Date: 20150821
  Serious: Yes (Other)
  Sender: FDA-Public Use
  Company Number: DE-001834

PATIENT
  Age: 45 Year
  Sex: Male
  Weight: 43 kg

DRUGS (3)
  1. REVESTIVE (REVESTIVE) [Suspect]
     Active Substance: TEDUGLUTIDE
     Indication: CROHN^S DISEASE
     Route: 058
     Dates: start: 20141217
  2. PREDNISOLON [Concomitant]
     Active Substance: PREDNISOLONE
  3. PENTASA [Concomitant]
     Active Substance: MESALAMINE

REACTIONS (1)
  - Haematochezia [None]

NARRATIVE: CASE EVENT DATE: 20150322
